FAERS Safety Report 16452931 (Version 1)
Quarter: 2019Q2

REPORT INFORMATION
  Report Type: Spontaneous
  Country: US (occurrence: US)
  Receive Date: 20190619
  Receipt Date: 20190619
  Transmission Date: 20190711
  Serious: No
  Sender: FDA-Public Use
  Company Number: US-SA-2019SA160139

PATIENT
  Age: 69 Year
  Sex: Female

DRUGS (3)
  1. CAMPATH [Suspect]
     Active Substance: ALEMTUZUMAB
     Dosage: UNK, UNK
     Route: 041
     Dates: start: 20190610, end: 20190610
  2. CAMPATH [Suspect]
     Active Substance: ALEMTUZUMAB
     Indication: LARGE GRANULAR LYMPHOCYTOSIS
     Dosage: UNK, UNK
     Route: 041
     Dates: start: 20190603, end: 20190607
  3. METHOTREXATE. [Concomitant]
     Active Substance: METHOTREXATE
     Indication: LARGE GRANULAR LYMPHOCYTOSIS

REACTIONS (6)
  - Red blood cell count increased [Unknown]
  - Pyrexia [Unknown]
  - Hallucination, auditory [Unknown]
  - Hypoacusis [Unknown]
  - Neutrophil count increased [Unknown]
  - Chills [Unknown]

NARRATIVE: CASE EVENT DATE: 201906
